FAERS Safety Report 25509824 (Version 2)
Quarter: 2025Q3

REPORT INFORMATION
  Report Type: Spontaneous
  Country: KR (occurrence: KR)
  Receive Date: 20250703
  Receipt Date: 20250717
  Transmission Date: 20251020
  Serious: Yes (Hospitalization)
  Sender: SAMSUNG BIOEPIS
  Company Number: KR-SAMSUNG BIOEPIS-SB-2025-22775

PATIENT
  Age: 66 Year
  Sex: Female
  Weight: 52 kg

DRUGS (34)
  1. TRASTUZUMAB [Suspect]
     Active Substance: TRASTUZUMAB
     Indication: Bile duct cancer
     Route: 042
     Dates: start: 20250212, end: 20250707
  2. NIVOLUMAB [Suspect]
     Active Substance: NIVOLUMAB
     Indication: Bile duct cancer
     Route: 042
     Dates: start: 20250212, end: 20250707
  3. GEMCITABINE [Suspect]
     Active Substance: GEMCITABINE
     Indication: Bile duct cancer
     Route: 042
     Dates: start: 20250212, end: 20250708
  4. CISPLATIN [Suspect]
     Active Substance: CISPLATIN
     Indication: Bile duct cancer
     Route: 042
     Dates: start: 20250212, end: 20250708
  5. Ganakhan [Concomitant]
     Indication: Product used for unknown indication
     Dates: start: 2025
  6. HERBALS [Concomitant]
     Active Substance: HERBALS
     Indication: Product used for unknown indication
     Dates: start: 2025
  7. Sensival [Concomitant]
     Indication: Product used for unknown indication
     Dates: start: 2025
  8. Movizolo [Concomitant]
     Indication: Product used for unknown indication
     Dates: start: 2025
  9. TEGOPRAZAN [Concomitant]
     Active Substance: TEGOPRAZAN
     Indication: Product used for unknown indication
     Dates: start: 2025
  10. NALOXONE HYDROCHLORIDE\OXYCODONE HYDROCHLORIDE [Concomitant]
     Active Substance: NALOXONE HYDROCHLORIDE\OXYCODONE HYDROCHLORIDE
     Indication: Product used for unknown indication
     Dosage: 5/2.5MG;
     Dates: start: 2025
  11. NALOXONE HYDROCHLORIDE\OXYCODONE HYDROCHLORIDE [Concomitant]
     Active Substance: NALOXONE HYDROCHLORIDE\OXYCODONE HYDROCHLORIDE
     Dates: start: 20250225
  12. ULTRACET [Concomitant]
     Active Substance: ACETAMINOPHEN\TRAMADOL HYDROCHLORIDE
     Indication: Product used for unknown indication
     Dates: start: 2025
  13. ADENINE\BIFENDATE\CARNITINE\MAMMAL LIVER\VITAMIN B COMPLEX [Concomitant]
     Active Substance: ADENINE\BIFENDATE\CARNITINE\MAMMAL LIVER\VITAMIN B COMPLEX
     Indication: Prophylaxis
     Dates: start: 20250210
  14. Daewoong Ursa b [Concomitant]
     Indication: Prophylaxis
     Dates: start: 20250210
  15. DICLOFENAC\DICYCLOMINE [Concomitant]
     Active Substance: DICLOFENAC\DICYCLOMINE
     Indication: Product used for unknown indication
     Dates: start: 2025
  16. ZOLOFT [Concomitant]
     Active Substance: SERTRALINE HYDROCHLORIDE
     Indication: Product used for unknown indication
     Dates: start: 2025
  17. OXYCODONE HYDROCHLORIDE [Concomitant]
     Active Substance: OXYCODONE HYDROCHLORIDE
     Indication: Product used for unknown indication
     Dates: start: 20250210
  18. REBAMIPIDE [Concomitant]
     Active Substance: REBAMIPIDE
     Indication: Product used for unknown indication
     Dates: start: 20250211
  19. Dulackhan [Concomitant]
     Indication: Prophylaxis
     Dates: start: 20250211
  20. Magmil S [Concomitant]
     Indication: Prophylaxis
     Dates: start: 20250211
  21. ALOXI [Concomitant]
     Active Substance: PALONOSETRON HYDROCHLORIDE
     Indication: Prophylaxis
     Dates: start: 20250212
  22. DEXAMETHASONE SODIUM PHOSPHATE [Concomitant]
     Active Substance: DEXAMETHASONE SODIUM PHOSPHATE
     Indication: Prophylaxis
     Dates: start: 20250212
  23. TIROPA [TICLOPIDINE HYDROCHLORIDE] [Concomitant]
     Indication: Product used for unknown indication
     Dates: start: 20250225
  24. DULCOLAX (BISACODYL) [Concomitant]
     Active Substance: BISACODYL
     Indication: Prophylaxis
     Dates: start: 20250225
  25. Daewon Morphine Sulfate Hydrate [Concomitant]
     Indication: Product used for unknown indication
     Dates: start: 20250225
  26. Daewon Morphine Sulfate Hydrate [Concomitant]
     Dates: start: 20250314
  27. EMEND [Concomitant]
     Active Substance: APREPITANT
     Indication: Prophylaxis
     Route: 042
     Dates: start: 20250326
  28. MEGACE [Concomitant]
     Active Substance: MEGESTROL ACETATE
     Indication: Prophylaxis
     Route: 048
     Dates: start: 20250326
  29. FILGRASTIM [Concomitant]
     Active Substance: FILGRASTIM
     Indication: Prophylaxis
     Dates: start: 20250416
  30. FILGRASTIM [Concomitant]
     Active Substance: FILGRASTIM
     Dates: start: 20250423
  31. FILGRASTIM [Concomitant]
     Active Substance: FILGRASTIM
     Dates: start: 20250402
  32. NEURONTIN [Concomitant]
     Active Substance: GABAPENTIN
     Indication: Prophylaxis
     Dates: start: 20250514
  33. GASMOTIN [LEVOSULPIRIDE] [Concomitant]
     Indication: Prophylaxis
     Dates: start: 20250625
  34. Movizolo [Concomitant]
     Indication: Prophylaxis
     Dates: start: 20250625

REACTIONS (3)
  - Pyrexia [Recovered/Resolved]
  - Sepsis [Recovering/Resolving]
  - Off label use [Unknown]

NARRATIVE: CASE EVENT DATE: 20250627
